FAERS Safety Report 23296979 (Version 1)
Quarter: 2023Q4

REPORT INFORMATION
  Report Type: Spontaneous
  Country: US (occurrence: US)
  Receive Date: 20231214
  Receipt Date: 20231214
  Transmission Date: 20240109
  Serious: Yes (Other)
  Sender: FDA-Public Use
  Company Number: US-TAKEDA-2023TUS119228

PATIENT
  Sex: Female
  Weight: 117.91 kg

DRUGS (1)
  1. GAMMAGARD LIQUID [Suspect]
     Active Substance: HUMAN IMMUNOGLOBULIN G
     Indication: Myasthenia gravis
     Dosage: 35 GRAM
     Route: 050
     Dates: start: 1993

REACTIONS (3)
  - Myasthenia gravis [Unknown]
  - COVID-19 [Unknown]
  - Guillain-Barre syndrome [Unknown]
